FAERS Safety Report 10377901 (Version 1)
Quarter: 2014Q3

REPORT INFORMATION
  Report Type: Spontaneous
  Country: US (occurrence: None)
  Receive Date: 20140807
  Receipt Date: 20140807
  Transmission Date: 20150326
  Serious: No
  Sender: FDA-Public Use
  Company Number: RI14-003-AE

PATIENT
  Age: 72 Year
  Sex: Female
  Weight: 78.93 kg

DRUGS (4)
  1. METFORMIN HCL [Suspect]
     Active Substance: METFORMIN HYDROCHLORIDE
     Indication: GLUCOSE TOLERANCE IMPAIRED
     Dosage: 1 TABLET TID, ORAL
     Route: 048
     Dates: start: 20131227
  2. HYDROCHLOROTHIAZIDE. [Concomitant]
     Active Substance: HYDROCHLOROTHIAZIDE
  3. THYROXINE [Concomitant]
     Active Substance: LEVOTHYROXINE
  4. LOSARTAN [Concomitant]
     Active Substance: LOSARTAN

REACTIONS (1)
  - Alopecia [None]

NARRATIVE: CASE EVENT DATE: 20131230
